FAERS Safety Report 10430646 (Version 2)
Quarter: 2014Q3

REPORT INFORMATION
  Report Type: Spontaneous
  Country: US (occurrence: US)
  Receive Date: 20140904
  Receipt Date: 20140909
  Transmission Date: 20150326
  Serious: Yes (Other)
  Sender: FDA-Public Use
  Company Number: US-TEVA-506823USA

PATIENT
  Sex: Female

DRUGS (1)
  1. PARAGARD T380A [Suspect]
     Active Substance: COPPER
     Indication: CONTRACEPTION
     Route: 015
     Dates: start: 201403, end: 20140718

REACTIONS (5)
  - Haemorrhagic cyst [Unknown]
  - Device dislocation [Recovered/Resolved]
  - Device breakage [Not Recovered/Not Resolved]
  - Pain [Unknown]
  - Embedded device [Unknown]
